FAERS Safety Report 15780425 (Version 1)
Quarter: 2019Q1

REPORT INFORMATION
  Report Type: Report from Study
  Country: US (occurrence: US)
  Receive Date: 20190102
  Receipt Date: 20190102
  Transmission Date: 20190417
  Serious: Yes (Other)
  Sender: FDA-Public Use
  Company Number: US-ASTELLAS-2018US055315

PATIENT
  Age: 78 Year
  Sex: Male

DRUGS (1)
  1. ENZALUTAMIDE [Suspect]
     Active Substance: ENZALUTAMIDE
     Indication: PRODUCT USED FOR UNKNOWN INDICATION
     Route: 065
     Dates: start: 201805

REACTIONS (6)
  - Peripheral coldness [Unknown]
  - Paraesthesia [Unknown]
  - Cerebrovascular accident [Unknown]
  - Head injury [Unknown]
  - Hypoaesthesia [Unknown]
  - Asthenia [Unknown]

NARRATIVE: CASE EVENT DATE: 201810
